FAERS Safety Report 12582147 (Version 1)
Quarter: 2016Q3

REPORT INFORMATION
  Report Type: Spontaneous
  Country: US (occurrence: None)
  Receive Date: 20160721
  Receipt Date: 20160721
  Transmission Date: 20161109
  Serious: Yes (Other)
  Sender: FDA-Public Use
  Company Number: None

PATIENT
  Age: 5 Month
  Sex: Female

DRUGS (15)
  1. A [Concomitant]
  2. VITAMIN B12 [Concomitant]
     Active Substance: CYANOCOBALAMIN
  3. LUTEIN [Concomitant]
     Active Substance: LUTEIN
  4. D [Concomitant]
  5. MULTI [Concomitant]
  6. E [Concomitant]
  7. DEHA [Concomitant]
  8. METPHORMIN [Concomitant]
  9. C [Concomitant]
  10. 5-HTP [Concomitant]
     Active Substance: OXITRIPTAN
  11. B1 [Concomitant]
  12. B6 [Concomitant]
     Active Substance: PYRIDOXINE HYDROCHLORIDE
  13. CALCIUM [Concomitant]
     Active Substance: CALCIUM
  14. JANUVIA [Suspect]
     Active Substance: SITAGLIPTIN PHOSPHATE
     Indication: DIABETES MELLITUS
     Dosage: 1 TABLET ONCE A DAY
     Route: 048
  15. MAGNESIUM [Concomitant]
     Active Substance: MAGNESIUM

REACTIONS (1)
  - Abdominal pain upper [None]

NARRATIVE: CASE EVENT DATE: 20151001
